FAERS Safety Report 9835551 (Version 2)
Quarter: 2014Q1

REPORT INFORMATION
  Report Type: Report from Study
  Country: CZ (occurrence: CZ)
  Receive Date: 20140122
  Receipt Date: 20140204
  Transmission Date: 20141002
  Serious: Yes (Hospitalization)
  Sender: FDA-Public Use
  Company Number: CZ-ONYX-2014-0102

PATIENT
  Age: 70 Year
  Sex: Female
  Weight: 79 kg

DRUGS (31)
  1. CARFILZOMIB [Suspect]
     Indication: PLASMA CELL MYELOMA
     Route: 042
     Dates: start: 20131022, end: 20131023
  2. CARFILZOMIB [Suspect]
     Route: 042
     Dates: start: 20131029, end: 20131120
  3. CARFILZOMIB [Suspect]
     Route: 042
     Dates: start: 20131203, end: 20131223
  4. CARFILZOMIB [Suspect]
     Route: 042
     Dates: start: 20140102
  5. MELPHALAN [Suspect]
     Indication: PLASMA CELL MYELOMA
     Route: 048
     Dates: start: 20131022
  6. PREDNISONE [Suspect]
     Indication: PLASMA CELL MYELOMA
     Route: 048
     Dates: start: 20131022
  7. LETROX [Concomitant]
     Indication: HYPOTHYROIDISM
     Route: 048
     Dates: start: 2009
  8. LORISTA H 50/12,5 MG [Concomitant]
     Indication: HYPERTENSION
     Route: 048
     Dates: start: 2003
  9. SECTRAL [Concomitant]
     Indication: HYPERTENSION
     Route: 048
     Dates: start: 2003
  10. LORISTA 50 [Concomitant]
     Indication: HYPERTENSION
     Route: 048
     Dates: start: 2003
  11. APO-AMLO [Concomitant]
     Indication: HYPERTENSION
     Route: 048
     Dates: start: 2003
  12. LUSOPRESS [Concomitant]
     Indication: HYPERTENSION
     Route: 048
     Dates: start: 2003
  13. TRANSTEC 70 UG/H [Concomitant]
     Indication: BONE PAIN
     Route: 062
     Dates: start: 20131014
  14. PARALEN [Concomitant]
     Indication: BONE PAIN
     Route: 048
     Dates: start: 20131014
  15. LUNALDIN [Concomitant]
     Indication: BONE PAIN
     Route: 060
     Dates: start: 20131011
  16. LACTULOSA [Concomitant]
     Indication: CONSTIPATION
     Route: 048
     Dates: start: 20131012
  17. SERETIDE DISKUS 50/100 [Concomitant]
     Indication: BRONCHITIS CHRONIC
     Route: 055
     Dates: start: 2013
  18. FRONTIN [Concomitant]
     Indication: ANXIETY
     Route: 048
     Dates: start: 20131014
  19. OTHER NUTRIENTS [Concomitant]
     Indication: HYPOALBUMINAEMIA
     Route: 048
     Dates: start: 20131011
  20. BISEPTOL [Concomitant]
     Indication: PROPHYLAXIS
     Route: 048
     Dates: start: 20131011
  21. OMEPRAZOL [Concomitant]
     Indication: PROPHYLAXIS AGAINST GASTROINTESTINAL ULCER
     Route: 048
     Dates: start: 20131011
  22. ANALERGIN= CETIRIZINI DIHYDROCHLORIDUM [Concomitant]
     Indication: BRONCHITIS CHRONIC
     Route: 048
     Dates: start: 2013
  23. FRAXIPARINE [Concomitant]
     Indication: THROMBOSIS PROPHYLAXIS
     Route: 058
     Dates: start: 20131011
  24. BONDRONAT [Concomitant]
     Indication: BONE LESION
     Route: 042
     Dates: start: 20131018
  25. KINITO [Concomitant]
     Indication: CONSTIPATION
     Route: 048
     Dates: start: 20131014
  26. ZOFRAN [Concomitant]
     Indication: PROPHYLAXIS OF NAUSEA AND VOMITING
     Route: 042
     Dates: start: 20131022
  27. ZOVIRAX [Concomitant]
     Indication: ANTIVIRAL PROPHYLAXIS
     Route: 048
     Dates: start: 20131023
  28. REMERON [Concomitant]
     Indication: ANXIETY
     Route: 048
     Dates: start: 20131029
  29. MYCOMAX [Concomitant]
     Indication: ANTIFUNGAL PROPHYLAXIS
     Route: 048
     Dates: start: 20131027
  30. TRANSTEC 70 UG/H [Concomitant]
     Indication: BONE PAIN
     Route: 062
     Dates: start: 20131112
  31. ALLOPURINOL [Concomitant]
     Indication: PROPHYLAXIS
     Route: 048
     Dates: start: 20131120

REACTIONS (1)
  - Blood creatinine increased [Recovered/Resolved]
